FAERS Safety Report 5267674-7 (Version None)
Quarter: 2007Q1

REPORT INFORMATION
  Report Type: 
  Country: None (occurrence: None)
  Receive Date: 20070316
  Receipt Date: 20070221
  Transmission Date: 20070707
  Serious: Yes (Death, Hospitalization, Other)
  Sender: FDA-Public Use
  Company Number: US-PFIZER INC-2006069295

PATIENT
  Sex: Male

DRUGS (3)
  1. BEXTRA [Suspect]
     Dates: start: 20000111, end: 20040429
  2. CELEBREX [Suspect]
     Indication: PAIN
     Dates: start: 20000111, end: 20040429
  3. VIOXX [Suspect]
     Dates: start: 20001003, end: 20040429

REACTIONS (2)
  - MYOCARDIAL INFARCTION [None]
  - MYOCARDIAL ISCHAEMIA [None]
